FAERS Safety Report 7004788-5 (Version None)
Quarter: 2010Q3

REPORT INFORMATION
  Report Type: 
  Country: None (occurrence: None)
  Receive Date: 20100921
  Receipt Date: 20100913
  Transmission Date: 20110219
  Serious: Yes (Other)
  Sender: FDA-Public Use
  Company Number: US-SANOFI-AVENTIS-2010SA056001

PATIENT
  Age: 63 Year
  Sex: Female

DRUGS (2)
  1. AMBIEN [Suspect]
     Route: 048
     Dates: end: 20080808
  2. ALL OTHER THERAPEUTIC PRODUCTS [Concomitant]
     Dates: end: 20080808

REACTIONS (8)
  - AMNESIA [None]
  - HALLUCINATION [None]
  - HOMICIDE [None]
  - INTENTIONAL SELF-INJURY [None]
  - LACERATION [None]
  - LOSS OF CONSCIOUSNESS [None]
  - PERSONALITY CHANGE [None]
  - TREMOR [None]
